FAERS Safety Report 23868808 (Version 1)
Quarter: 2024Q2

REPORT INFORMATION
  Report Type: Spontaneous
  Country: US (occurrence: US)
  Receive Date: 20240517
  Receipt Date: 20240517
  Transmission Date: 20240715
  Serious: Yes (Hospitalization)
  Sender: FDA-Public Use
  Company Number: US-UPSHER-SMITH LABORATORIES, LLC-2024USL00340

PATIENT
  Sex: Male

DRUGS (2)
  1. VIGADRONE [Suspect]
     Active Substance: VIGABATRIN
     Indication: Infantile spasms
     Dosage: 250 MG, 2X/DAY, AS DIRECTED
     Route: 048
     Dates: start: 20230221
  2. VIGADRONE [Suspect]
     Active Substance: VIGABATRIN
     Dosage: UNK DOSE INCREASE
     Route: 048

REACTIONS (9)
  - Pain [Unknown]
  - Sleep disorder [Unknown]
  - Crying [Unknown]
  - Discomfort [Unknown]
  - Balance disorder [Unknown]
  - Seizure [Unknown]
  - Somnolence [Unknown]
  - Psychomotor hyperactivity [Unknown]
  - Fatigue [Not Recovered/Not Resolved]
